FAERS Safety Report 12252732 (Version 3)
Quarter: 2016Q2

REPORT INFORMATION
  Report Type: Spontaneous
  Country: US (occurrence: US)
  Receive Date: 20160411
  Receipt Date: 20160629
  Transmission Date: 20160815
  Serious: No
  Sender: FDA-Public Use
  Company Number: US-HORIZON-ACT-0085-2016

PATIENT
  Age: 55 Year
  Sex: Male

DRUGS (1)
  1. ACTIMMUNE [Suspect]
     Active Substance: INTERFERON GAMMA-1B
     Indication: DERMATITIS ATOPIC
     Dosage: 0.5 ML EVERY NIGHT
     Dates: start: 20130320

REACTIONS (3)
  - Chills [Unknown]
  - Off label use [Unknown]
  - Fatigue [Unknown]
